FAERS Safety Report 24263571 (Version 5)
Quarter: 2025Q1

REPORT INFORMATION
  Report Type: Spontaneous
  Country: JP (occurrence: JP)
  Receive Date: 20240829
  Receipt Date: 20250116
  Transmission Date: 20250408
  Serious: Yes (Hospitalization, Other)
  Sender: PFIZER
  Company Number: JP-PFIZER INC-PV202400072265

PATIENT
  Age: 80 Year
  Sex: Male
  Weight: 48.9 kg

DRUGS (11)
  1. ELREXFIO [Suspect]
     Active Substance: ELRANATAMAB-BCMM
     Indication: Plasma cell myeloma
     Dosage: 12 MG, 1X/DAY
     Route: 058
     Dates: start: 20240607, end: 20240607
  2. ELREXFIO [Suspect]
     Active Substance: ELRANATAMAB-BCMM
     Dosage: 32 MG, 1X/DAY
     Route: 058
     Dates: start: 20240611, end: 20240611
  3. ELREXFIO [Suspect]
     Active Substance: ELRANATAMAB-BCMM
     Dosage: 76 MG, 1X/DAY
     Route: 058
     Dates: start: 20240625, end: 20240625
  4. ELREXFIO [Suspect]
     Active Substance: ELRANATAMAB-BCMM
     Dosage: 76 MG, 1X/DAY
     Route: 058
     Dates: start: 20240702, end: 20240702
  5. RABEPRAZOLE SODIUM [Concomitant]
     Active Substance: RABEPRAZOLE SODIUM
     Dosage: 10 MG (1 TABLET), 1X/DAY AFTER BREAKFAST
     Route: 048
     Dates: start: 20240607
  6. ZOVIRAX [Concomitant]
     Active Substance: ACYCLOVIR
     Dosage: 200 MG(1 TABLET), 1X/DAY AFTER BREAKFAST
     Route: 048
     Dates: start: 20240607
  7. SULFAMETHOXAZOLE\TRIMETHOPRIM [Concomitant]
     Active Substance: SULFAMETHOXAZOLE\TRIMETHOPRIM
     Dosage: 0.5 DF 1X/DAY AFTER BREAKFAST, ALTERNATE DAY
     Route: 048
     Dates: start: 20240607
  8. ACETAMINOPHEN\TRAMADOL HYDROCHLORIDE [Concomitant]
     Active Substance: ACETAMINOPHEN\TRAMADOL HYDROCHLORIDE
     Dosage: 1 TABLET, 2X/DAY AFTER BREAKFAST AND DINNER
     Route: 048
     Dates: start: 20240607
  9. FLUCONAZOLE [Concomitant]
     Active Substance: FLUCONAZOLE
     Dosage: 2 TABLETS, 1X/DAY  AFTER BREAKFAST
     Route: 048
     Dates: start: 20240607
  10. PROPIVERINE [Concomitant]
     Active Substance: PROPIVERINE
     Dosage: 2 TABLETS, 1X/DAY AFTER BREAKFAST
     Route: 048
     Dates: start: 20240607
  11. VIBEGRON [Concomitant]
     Active Substance: VIBEGRON
     Dosage: 50 MG(1 TABLET), 1X/DAY
     Route: 048

REACTIONS (7)
  - Infection [Recovered/Resolved]
  - Decreased appetite [Recovered/Resolved]
  - Dehydration [Recovered/Resolved]
  - Pyelonephritis [Unknown]
  - Altered state of consciousness [Unknown]
  - Sepsis [Unknown]
  - Hyponatraemia [Recovered/Resolved]

NARRATIVE: CASE EVENT DATE: 20240101
